FAERS Safety Report 6268814-3 (Version None)
Quarter: 2009Q3

REPORT INFORMATION
  Report Type: 
  Country: None (occurrence: None)
  Receive Date: 20090715
  Receipt Date: 20090714
  Transmission Date: 20100115
  Serious: Yes (Death)
  Sender: FDA-Public Use
  Company Number: ES-B.I. PHARMACEUTICALS,INC./RIDGEFIELD-2009-ES-00126ES

PATIENT
  Age: 78 Year
  Sex: Male

DRUGS (3)
  1. MICARDIS [Suspect]
     Route: 048
  2. ADIRO [Suspect]
     Route: 048
  3. BONIVA [Suspect]
     Indication: OSTEOPOROSIS
     Dosage: 150 MG
     Route: 048
     Dates: start: 20080807, end: 20080807

REACTIONS (1)
  - HEPATITIS ACUTE [None]
